FAERS Safety Report 8420804 (Version 6)
Quarter: 2012Q4

REPORT INFORMATION
  Report Type: 
  Country: DE (occurrence: DE)
  Receive Date: 20120222
  Receipt Date: 20121008
  Transmission Date: 20130627
  Serious: Yes (Death, Life-Threatening, Hospitalization, Disabling)
  Sender: FDA-Public Use
  Company Number: DE-ABBOTT-12P-062-0906171-00

PATIENT
  Age: 72 Year
  Sex: Male
  Weight: 78 kg

DRUGS (2)
  1. ENANTONE 3.75 MG [Suspect]
     Indication: PROSTATE CANCER METASTATIC
     Route: 058
     Dates: start: 20120109
  2. ENANTONE 3.75 MG [Suspect]
     Indication: URETHRAL CANCER

REACTIONS (2)
  - Cerebrovascular accident [Fatal]
  - Death [Fatal]
